FAERS Safety Report 8188294-0 (Version None)
Quarter: 2012Q1

REPORT INFORMATION
  Report Type: 
  Country: None (occurrence: None)
  Receive Date: 20120306
  Receipt Date: 20120222
  Transmission Date: 20120608
  Serious: Yes (Hospitalization)
  Sender: FDA-Public Use
  Company Number: US-ELI_LILLY_AND_COMPANY-US201004002190

PATIENT
  Sex: Female
  Weight: 48.073 kg

DRUGS (22)
  1. FORTEO [Suspect]
     Dosage: 20 UG, DAILY (1/D)
     Route: 058
  2. VALIUM [Concomitant]
     Dosage: 10 MG, QD
     Route: 048
  3. MIRAPEX [Concomitant]
     Indication: RESTLESS LEGS SYNDROME
     Dosage: 0.25 MG, EACH EVENING
  4. PRAMIPEXOLE DIHYCHLLORIDE [Concomitant]
     Dosage: 0.125 MG, QD
     Route: 048
  5. COLACE [Concomitant]
     Dosage: 100 MG, BID
     Route: 048
  6. GOLD BOND [Concomitant]
     Indication: PRURITUS
  7. PRILOSEC [Concomitant]
     Dosage: 20 MG, QD
     Route: 048
  8. TRIAMTERENE AND HYDROCHLOROTHIAZIDE [Concomitant]
     Indication: HYPERTENSION
     Dosage: UNK, QD
  9. VITAMIN B COMPLEX CAP [Concomitant]
     Dosage: UNK, MONTHLY (1/M)
  10. CITRACAL + D [Concomitant]
  11. MULTI-VITAMINS [Concomitant]
     Dosage: UNK
     Dates: end: 20111001
  12. VITAMIN B-12 [Concomitant]
  13. PRAVACHOL [Concomitant]
     Dosage: 20 MG, QD
     Route: 048
  14. OMEPRAZOLE [Concomitant]
     Indication: GASTROOESOPHAGEAL REFLUX DISEASE
     Dosage: 20 MG, QD
  15. FORTEO [Suspect]
     Dosage: 40 UG, QD
     Route: 058
     Dates: end: 20111010
  16. MAXZIDE [Concomitant]
     Dosage: 1 DF, QD
     Route: 048
  17. FORTEO [Suspect]
     Indication: OSTEOPOROSIS
     Dosage: 20 UG, DAILY (1/D)
     Route: 058
  18. FORTEO [Suspect]
     Dosage: 20 UG, QD
     Route: 058
     Dates: start: 20111207
  19. MIRALAX [Concomitant]
     Indication: CONSTIPATION
     Dosage: 1 DF, PRN
     Route: 048
  20. DIAZEPAM [Concomitant]
     Dosage: 10 MG, PRN
  21. PERCOCET [Concomitant]
     Indication: PAIN
     Dosage: 1 DF, PRN
     Route: 048
  22. PRAVASTATIN [Concomitant]
     Indication: HYPERLIPIDAEMIA
     Dosage: 20 MG, QD

REACTIONS (18)
  - UPPER LIMB FRACTURE [None]
  - FEAR [None]
  - SKIN OPERATION [None]
  - PAIN [None]
  - ANAEMIA [None]
  - NON-CARDIAC CHEST PAIN [None]
  - VERTIGO [None]
  - TENDERNESS [None]
  - HUMERUS FRACTURE [None]
  - FALL [None]
  - PRURITUS [None]
  - INJECTION SITE HAEMATOMA [None]
  - ACCIDENT [None]
  - URTICARIA [None]
  - BACK INJURY [None]
  - ERYTHEMA [None]
  - HEADACHE [None]
  - DEPRESSED MOOD [None]
